FAERS Safety Report 8596120-0 (Version None)
Quarter: 2012Q3

REPORT INFORMATION
  Report Type: 
  Country: None (occurrence: None)
  Receive Date: 20120807
  Receipt Date: 20120807
  Transmission Date: 20120928
  Serious: No
  Sender: FDA-Public Use
  Company Number: None

PATIENT
  Sex: Female
  Weight: 56.6996 kg

DRUGS (2)
  1. INVEGA [Suspect]
     Dosage: LOW DOSE BEDTIME X 1
  2. TEGRETOL [Suspect]
     Dosage: 100MG X 6 300 EACH TIME X 2
     Dates: start: 20100701, end: 20101001

REACTIONS (6)
  - OEDEMA PERIPHERAL [None]
  - RENAL IMPAIRMENT [None]
  - MYDRIASIS [None]
  - DYSURIA [None]
  - MEMORY IMPAIRMENT [None]
  - EPISTAXIS [None]
